FAERS Safety Report 24779281 (Version 1)
Quarter: 2024Q4

REPORT INFORMATION
  Report Type: Spontaneous
  Country: US (occurrence: None)
  Receive Date: 20241226
  Receipt Date: 20241226
  Transmission Date: 20250114
  Serious: Yes (Hospitalization)
  Sender: Public
  Company Number: None

PATIENT
  Sex: Female

DRUGS (11)
  1. XOLAIR [Suspect]
     Active Substance: OMALIZUMAB
     Indication: Idiopathic urticaria
     Dosage: FREQUENCY : MONTHLY;?
     Dates: start: 20220927
  2. ALBUTEROL AER HFA [Concomitant]
  3. ATORVASTATIN TAB 20MG [Concomitant]
  4. BENADRYL [Concomitant]
     Active Substance: DIPHENHYDRAMINE HYDROCHLORIDE
  5. BRILINTA TAB 90MG [Concomitant]
  6. BUMEX TAB 0.5MG [Concomitant]
  7. BUSPIRONE [Concomitant]
     Active Substance: BUSPIRONE HYDROCHLORIDE
  8. CELEBREX [Concomitant]
     Active Substance: CELECOXIB
  9. CETIRIZINE HCL [Concomitant]
     Active Substance: CETIRIZINE HYDROCHLORIDE
  10. DICLOFENAC GEL 3^% [Concomitant]
  11. DICLOFENAC TAB 50MG DR [Concomitant]

REACTIONS (3)
  - Drug ineffective [None]
  - Asthma [None]
  - Quality of life decreased [None]
